FAERS Safety Report 5424469-9 (Version None)
Quarter: 2007Q3

REPORT INFORMATION
  Report Type: 
  Country: None (occurrence: None)
  Receive Date: 20070822
  Receipt Date: 20070810
  Transmission Date: 20080115
  Serious: Yes (Hospitalization, Disabling)
  Sender: FDA-Public Use
  Company Number: GXKR2007NL06975

PATIENT
  Age: 54 Year
  Sex: Male

DRUGS (2)
  1. CIPROFLOXACIN [Suspect]
     Dosage: 1 DF, BID, ORAL
     Route: 048
     Dates: start: 20051228
  2. PREDNISOLONE [Suspect]
     Dates: start: 19990601

REACTIONS (2)
  - TENDON OPERATION [None]
  - TENDON RUPTURE [None]
